FAERS Safety Report 10708520 (Version 1)
Quarter: 2015Q1

REPORT INFORMATION
  Report Type: Report from Study
  Country: FR (occurrence: FR)
  Receive Date: 20150113
  Receipt Date: 20150113
  Transmission Date: 20150721
  Serious: Yes (Hospitalization)
  Sender: FDA-Public Use
  Company Number: FR-ROCHE-1519477

PATIENT
  Sex: Female

DRUGS (14)
  1. RITUXIMAB [Suspect]
     Active Substance: RITUXIMAB
     Dosage: SINGLE INFUSION
     Route: 042
     Dates: start: 20130419
  2. METHOTREXATE [Concomitant]
     Active Substance: METHOTREXATE
     Route: 065
  3. APRANAX [Concomitant]
     Active Substance: NAPROXEN
  4. RITUXIMAB [Suspect]
     Active Substance: RITUXIMAB
     Indication: RHEUMATOID ARTHRITIS
     Dosage: DAY 1
     Route: 042
     Dates: start: 20080317
  5. RITUXIMAB [Suspect]
     Active Substance: RITUXIMAB
     Dosage: DAY 1
     Route: 042
     Dates: start: 20110221
  6. CORTANCYL [Concomitant]
     Active Substance: PREDNISONE
     Route: 065
  7. CORTANCYL [Concomitant]
     Active Substance: PREDNISONE
     Route: 065
  8. AMLODIPINE [Concomitant]
     Active Substance: AMLODIPINE BESYLATE
     Dosage: DOSE= 2.5 MG/L
     Route: 065
  9. CORTANCYL [Concomitant]
     Active Substance: PREDNISONE
     Route: 065
  10. RITUXIMAB [Suspect]
     Active Substance: RITUXIMAB
     Dosage: SINGLE INFUSION
     Route: 042
     Dates: start: 20131210
  11. LEFLUNOMIDE. [Concomitant]
     Active Substance: LEFLUNOMIDE
     Route: 065
  12. RITUXIMAB [Suspect]
     Active Substance: RITUXIMAB
     Dosage: DAY 15
     Route: 042
     Dates: start: 20080331
  13. RITUXIMAB [Suspect]
     Active Substance: RITUXIMAB
     Dosage: SECOND INFUSION, DAY 15
     Route: 042
     Dates: start: 20110307
  14. ARAVA [Concomitant]
     Active Substance: LEFLUNOMIDE
     Route: 065

REACTIONS (6)
  - Lung disorder [Recovered/Resolved]
  - Rib fracture [Not Recovered/Not Resolved]
  - Dyspnoea [Recovered/Resolved]
  - Viral infection [Recovered/Resolved]
  - Gastroenteritis viral [Recovered/Resolved]
  - Cough [Recovered/Resolved]

NARRATIVE: CASE EVENT DATE: 201101
